FAERS Safety Report 25624649 (Version 2)
Quarter: 2025Q4

REPORT INFORMATION
  Report Type: Spontaneous
  Country: EU (occurrence: EU)
  Receive Date: 20250730
  Receipt Date: 20251006
  Transmission Date: 20260117
  Serious: Yes (Hospitalization, Other)
  Sender: JOHNSON AND JOHNSON
  Company Number: EU-JNJFOC-20250733374

PATIENT
  Age: 76 Year
  Sex: Male
  Weight: 85 kg

DRUGS (4)
  1. RIVAROXABAN [Suspect]
     Active Substance: RIVAROXABAN
     Indication: Atrial fibrillation
     Dosage: 15 MG, QD
     Route: 048
     Dates: start: 20240912, end: 20240917
  2. RIVAROXABAN [Suspect]
     Active Substance: RIVAROXABAN
     Indication: Cerebrovascular accident
  3. LISINOPRIL [Concomitant]
     Active Substance: LISINOPRIL
     Indication: Hypertension
     Dosage: 10 MG, QD
     Route: 048
  4. DIGOXIN [Concomitant]
     Active Substance: DIGOXIN
     Indication: Product used for unknown indication

REACTIONS (3)
  - Acute kidney injury [Recovering/Resolving]
  - Gastrointestinal haemorrhage [Recovered/Resolved]
  - Haemoglobin decreased [Recovered/Resolved]

NARRATIVE: CASE EVENT DATE: 20240912
